FAERS Safety Report 5655875-5 (Version None)
Quarter: 2008Q1

REPORT INFORMATION
  Report Type: 
  Country: None (occurrence: None)
  Receive Date: 20080307
  Receipt Date: 20080123
  Transmission Date: 20080703
  Serious: Yes (Other)
  Sender: FDA-Public Use
  Company Number: GB-PFIZER INC-2008017932

PATIENT
  Age: 51 Year
  Sex: Male

DRUGS (6)
  1. PREDNISOLONE [Suspect]
     Indication: CHRONIC OBSTRUCTIVE PULMONARY DISEASE
     Route: 048
     Dates: start: 20080103, end: 20080104
  2. DALTEPARIN SODIUM [Concomitant]
     Indication: PULMONARY EMBOLISM
     Dosage: DAILY DOSE:12500I.U.
  3. LEVOFLOXACIN [Concomitant]
     Indication: LOWER RESPIRATORY TRACT INFECTION
     Dosage: DAILY DOSE:500MG
  4. METHADONE HCL [Concomitant]
     Indication: WITHDRAWAL SYNDROME
  5. VITAMIN CAP [Concomitant]
     Dosage: TEXT:1 DF
  6. THIAMINE [Concomitant]

REACTIONS (3)
  - DYSPNOEA [None]
  - RASH [None]
  - WHEEZING [None]
